FAERS Safety Report 23044548 (Version 1)
Quarter: 2023Q4

REPORT INFORMATION
  Report Type: Spontaneous
  Country: GB (occurrence: GB)
  Receive Date: 20231009
  Receipt Date: 20231009
  Transmission Date: 20240110
  Serious: Yes (Other)
  Sender: FDA-Public Use
  Company Number: None

PATIENT
  Age: 52 Year
  Sex: Female

DRUGS (12)
  1. METHOTREXATE [Suspect]
     Active Substance: METHOTREXATE
     Indication: Product used for unknown indication
     Dosage: UNK
  2. SECUKINUMAB [Suspect]
     Active Substance: SECUKINUMAB
     Indication: Psoriatic arthropathy
     Dosage: 300 MG, QW (WEEK 0, 1, 2, 3, 4) (2 PRE-FILLED DISPOSABLE INJECTION)??OROPHARYNGEAL USE
  3. METHOTREXATE [Suspect]
     Active Substance: METHOTREXATE
     Indication: Product used for unknown indication
     Dosage: UNK
     Route: 065
  4. METHOTREXATE [Suspect]
     Active Substance: METHOTREXATE
     Indication: Product used for unknown indication
     Dosage: UNK
     Route: 065
  5. METHOTREXATE [Suspect]
     Active Substance: METHOTREXATE
     Indication: Product used for unknown indication
     Dosage: UNK
     Route: 065
  6. METHOTREXATE [Suspect]
     Active Substance: METHOTREXATE
     Indication: Product used for unknown indication
     Dosage: UNK
     Route: 065
  7. SECUKINUMAB [Suspect]
     Active Substance: SECUKINUMAB
     Indication: Psoriatic arthropathy
     Dosage: 150 MG, QMO?OROPHARYNGEAL USE
  8. SECUKINUMAB [Suspect]
     Active Substance: SECUKINUMAB
     Indication: Psoriatic arthropathy
     Dosage: 300 MG, QW (WEEK 0, 1, 2, 3, 4) (2 PRE-FILLED DISPOSABLE INJECTION)
     Dates: start: 20190608
  9. SECUKINUMAB [Suspect]
     Active Substance: SECUKINUMAB
     Indication: Psoriatic arthropathy
     Dosage: 300 MG, QMO (2 PRE-FILLED DISPOSABLE INJECTION)??SUBCUTANEOUS
     Dates: start: 20190608
  10. SECUKINUMAB [Suspect]
     Active Substance: SECUKINUMAB
     Indication: Psoriatic arthropathy
     Dosage: 300 MG, QMO (2 PRE-FILLED DISPOSABLE INJECTION)??ORPHARYNGEAL USE
  11. SECUKINUMAB [Suspect]
     Active Substance: SECUKINUMAB
     Indication: Psoriatic arthropathy
     Dosage: 300 MG, QW (WEEK 0, 1, 2, 3, 4) (2 PRE-FILLED DISPOSABLE INJECTION)??OROPHARYNGEAL USE
  12. SECUKINUMAB [Suspect]
     Active Substance: SECUKINUMAB
     Indication: Psoriatic arthropathy
     Dosage: 300 MILLIGRAM, MONTHLY?OROPHARYNGEAL USE

REACTIONS (19)
  - Eye disorder [Unknown]
  - Psoriatic arthropathy [Not Recovered/Not Resolved]
  - Liver injury [Unknown]
  - Ear pain [Unknown]
  - Fibromyalgia [Unknown]
  - Product availability issue [Unknown]
  - Pain [Not Recovered/Not Resolved]
  - Illness [Unknown]
  - Anxiety [Unknown]
  - Decreased appetite [Not Recovered/Not Resolved]
  - Headache [Unknown]
  - Inappropriate schedule of product administration [Not Recovered/Not Resolved]
  - Depressed mood [Not Recovered/Not Resolved]
  - Tearfulness [Not Recovered/Not Resolved]
  - Memory impairment [Unknown]
  - Mental impairment [Not Recovered/Not Resolved]
  - Malaise [Unknown]
  - Stress [Not Recovered/Not Resolved]
  - Product dose omission issue [Unknown]
